FAERS Safety Report 6128579-2 (Version None)
Quarter: 2009Q1

REPORT INFORMATION
  Report Type: 
  Country: None (occurrence: None)
  Receive Date: 20090323
  Receipt Date: 20090316
  Transmission Date: 20090719
  Serious: Yes (Hospitalization, Congenital Anomaly, Other)
  Sender: FDA-Public Use
  Company Number: TR-ROXANE LABORATORIES, INC.-2009-RO-00239RO

PATIENT
  Age: 1 Day
  Sex: Female
  Weight: 2 kg

DRUGS (3)
  1. LAMOTRIGINE [Suspect]
     Indication: DRUG EXPOSURE DURING PREGNANCY
     Dosage: 100MG
     Route: 064
  2. OXCARBAZEPINE [Suspect]
     Indication: DRUG EXPOSURE DURING PREGNANCY
     Dosage: 1200MG
     Route: 064
  3. CARBAMAZEPINE [Concomitant]
     Indication: DRUG EXPOSURE DURING PREGNANCY
     Dosage: 1000MG
     Route: 064

REACTIONS (11)
  - ABNORMAL PALMAR/PLANTAR CREASES [None]
  - DYSMORPHISM [None]
  - FEEDING DISORDER NEONATAL [None]
  - HYPERTELORISM OF ORBIT [None]
  - HYPOGLYCAEMIA [None]
  - HYPOPNOEA [None]
  - JOINT CONTRACTURE [None]
  - LIMB MALFORMATION [None]
  - LOW SET EARS [None]
  - MICROGNATHIA [None]
  - SMALL FOR DATES BABY [None]
